FAERS Safety Report 19793102 (Version 1)
Quarter: 2021Q3

REPORT INFORMATION
  Report Type: Other
  Country: CA (occurrence: CA)
  Receive Date: 20210906
  Receipt Date: 20210906
  Transmission Date: 20211014
  Serious: Yes (Disabling)
  Sender: FDA-Public Use
  Company Number: CA-APOTEX-2021AP039848

PATIENT
  Age: 72 Year
  Sex: Female

DRUGS (4)
  1. ACETAMINOPHEN TABLETS USP 500 MG [Suspect]
     Active Substance: ACETAMINOPHEN
     Dosage: 4 DOSAGE FORM, PRN
     Route: 048
  2. JAMP ACETAMINOPHEN [Suspect]
     Active Substance: ACETAMINOPHEN
     Indication: PAIN
     Dosage: 2 DOSAGE FORM, PRN
     Route: 048
  3. ACETAMINOPHEN TABLETS USP 500 MG [Suspect]
     Active Substance: ACETAMINOPHEN
     Indication: PAIN
     Dosage: 2 DOSAGE FORM, PRN
     Route: 048
  4. MORPHINE [Concomitant]
     Active Substance: MORPHINE
     Indication: PRODUCT USED FOR UNKNOWN INDICATION
     Dosage: UNK
     Route: 065

REACTIONS (4)
  - Intentional product use issue [Not Recovered/Not Resolved]
  - Product substitution issue [Not Recovered/Not Resolved]
  - Drug ineffective [Not Recovered/Not Resolved]
  - Fall [Not Recovered/Not Resolved]
